FAERS Safety Report 5704204-7 (Version None)
Quarter: 2008Q2

REPORT INFORMATION
  Report Type: 
  Country: None (occurrence: None)
  Receive Date: 20080409
  Receipt Date: 20080401
  Transmission Date: 20081010
  Serious: Yes (Hospitalization)
  Sender: FDA-Public Use
  Company Number: 2008AL001975

PATIENT
  Age: 39 Year
  Sex: Male

DRUGS (3)
  1. ALPRAZOLAM [Suspect]
     Dosage: 5 MG, QD; PO
     Route: 048
  2. ESCITALOPRAM OXALATE [Concomitant]
  3. PREGABALIN [Concomitant]

REACTIONS (5)
  - AGITATION [None]
  - DRUG WITHDRAWAL SYNDROME [None]
  - HYPOAESTHESIA FACIAL [None]
  - POOR QUALITY SLEEP [None]
  - SWOLLEN TONGUE [None]
